FAERS Safety Report 7672073-4 (Version None)
Quarter: 2011Q3

REPORT INFORMATION
  Report Type: 
  Country: None (occurrence: None)
  Receive Date: 20110809
  Receipt Date: 20110726
  Transmission Date: 20111222
  Serious: Yes (Other)
  Sender: FDA-Public Use
  Company Number: PHHY2011BR26494

PATIENT
  Sex: Female

DRUGS (7)
  1. VASTAREL [Concomitant]
     Indication: ANGINA PECTORIS
     Dosage: 2 DF, UNK
     Route: 048
  2. DIOSMIN W/HESPERIDIN [Concomitant]
     Indication: VARICOSE VEIN
     Dosage: 2 DF, UNK
     Route: 048
  3. EXFORGE [Suspect]
     Indication: HYPERTENSION
     Dosage: 1 DF, 1 DF IN THE MORNING (320/10 MG)
     Route: 048
  4. ASPIRIN [Concomitant]
     Indication: CARDIOVASCULAR DISORDER
     Dosage: 200 MG, UNK
     Route: 048
     Dates: start: 20100601
  5. RASILEZ HCT [Suspect]
     Indication: HYPERTENSION
     Dosage: 1 DF AT NIGHT (300/12.5 MG)
     Route: 048
  6. SAXAGLIPTIN [Concomitant]
     Indication: DIABETES MELLITUS
     Dosage: 2 DF, UNK
     Route: 048
  7. AMIODARONE HCL [Concomitant]
     Indication: HYPERTENSION
     Dosage: 1 DF, UNK
     Route: 048
     Dates: start: 20110601

REACTIONS (3)
  - MULTIPLE SCLEROSIS [None]
  - OEDEMA PERIPHERAL [None]
  - ISCHAEMIA [None]
